FAERS Safety Report 16924136 (Version 1)
Quarter: 2019Q4

REPORT INFORMATION
  Report Type: Spontaneous
  Country: FR (occurrence: FR)
  Receive Date: 20191016
  Receipt Date: 20191016
  Transmission Date: 20200122
  Serious: Yes (Life-Threatening, Hospitalization)
  Sender: FDA-Public Use
  Company Number: FR-ZYDUS-041928

PATIENT
  Age: 68 Year
  Sex: Female
  Weight: 75 kg

DRUGS (6)
  1. TRAMADOL. [Suspect]
     Active Substance: TRAMADOL
     Indication: POISONING DELIBERATE
     Route: 048
     Dates: start: 20190217, end: 20190217
  2. PROPRANOLOL [Suspect]
     Active Substance: PROPRANOLOL HYDROCHLORIDE
     Indication: POISONING DELIBERATE
     Dosage: IN TOTAL
     Route: 048
     Dates: start: 20190217, end: 20190217
  3. EXFORGE [Suspect]
     Active Substance: AMLODIPINE BESYLATE\VALSARTAN
     Indication: POISONING DELIBERATE
     Dosage: IN TOTAL
     Route: 048
     Dates: start: 20190217, end: 20190217
  4. CODEINE PHOSPHATE/PARACETAMOL [Suspect]
     Active Substance: ACETAMINOPHEN\CODEINE PHOSPHATE
     Indication: POISONING DELIBERATE
     Dosage: IN TOTAL???TABLET BREACKABLE
     Route: 048
     Dates: start: 20190217, end: 20190217
  5. BISOPROLOL [Suspect]
     Active Substance: BISOPROLOL
     Indication: POISONING DELIBERATE
     Route: 048
     Dates: start: 20190217, end: 20190217
  6. PARACETAMOL [Suspect]
     Active Substance: ACETAMINOPHEN
     Indication: POISONING DELIBERATE
     Dosage: IN TOTAL
     Route: 048
     Dates: start: 20190217, end: 20190217

REACTIONS (4)
  - Coma [Recovered/Resolved]
  - Cardiogenic shock [Recovered/Resolved]
  - Vasoplegia syndrome [Recovered/Resolved]
  - Liver injury [Recovered/Resolved]

NARRATIVE: CASE EVENT DATE: 20190217
